FAERS Safety Report 7607923-0 (Version None)
Quarter: 2011Q3

REPORT INFORMATION
  Report Type: 
  Country: None (occurrence: None)
  Receive Date: 20110714
  Receipt Date: 20090217
  Transmission Date: 20111222
  Serious: Yes (Death, Other)
  Sender: FDA-Public Use
  Company Number: US-BAYER-200913492NA

PATIENT
  Age: 68 Year
  Sex: Male
  Weight: 70.748 kg

DRUGS (18)
  1. TRASYLOL [Suspect]
     Dosage: 50 ML/HR INFUSION
     Route: 042
     Dates: start: 20060919, end: 20060919
  2. ACETAMINOPHEN [Concomitant]
     Dosage: 30 MG, UNK
     Route: 048
     Dates: start: 20060919, end: 20060919
  3. METOPROLOL SUCCINATE [Concomitant]
     Dosage: 25 MG, UNK
     Route: 048
     Dates: start: 20060919, end: 20060919
  4. ANCEF [Concomitant]
     Dosage: 20 MG, UNK
     Route: 042
     Dates: start: 20060919, end: 20060919
  5. BENADRYL [Concomitant]
     Dosage: 50 MG, UNK
     Route: 042
     Dates: start: 20060919, end: 20060919
  6. VERSED [Concomitant]
     Dosage: 2 MG, UNK
     Route: 042
     Dates: start: 20060919, end: 20060919
  7. OMNIPAQUE 140 [Concomitant]
     Indication: CATHETERISATION CARDIAC
     Dosage: 150 ML, UNK
     Dates: start: 20060918
  8. TRASYLOL [Suspect]
     Indication: CORONARY ARTERY BYPASS
     Dosage: 200ML OVER 30 MINUTES
     Route: 042
     Dates: start: 20060919, end: 20060919
  9. ACETYLSALICYLIC ACID SRT [Concomitant]
     Dosage: 325 MG/24HR, UNK
     Route: 048
     Dates: start: 20060918
  10. HEPARIN [Concomitant]
     Dosage: 25,000 UNITS
     Dates: start: 20060919, end: 20060919
  11. RESTORIL [Concomitant]
     Dosage: 0.8 MG, UNK
     Route: 042
     Dates: start: 20060919, end: 20060919
  12. REGLAN [Concomitant]
     Dosage: 2 ML, UNK
     Route: 042
     Dates: start: 20060919, end: 20060920
  13. ZOFRAN [Concomitant]
     Dosage: 4 MG, UNK
     Route: 042
     Dates: start: 20060919, end: 20060919
  14. PEPCID [Concomitant]
     Dosage: 20 MG, UNK
     Route: 042
     Dates: start: 20060919, end: 20060919
  15. TRASYLOL [Suspect]
     Dosage: 10000 U, PER DOSE
     Route: 042
     Dates: start: 20060919, end: 20060919
  16. PLAVIX [Concomitant]
     Dosage: 75 MG/24HR, UNK
     Route: 048
     Dates: start: 20060918
  17. SIMVASTATIN [Concomitant]
     Dosage: 80 MG, UNK
     Route: 048
     Dates: start: 20060919, end: 20060919
  18. MORPHINE [Concomitant]
     Dosage: 3 MG, UNK
     Route: 042
     Dates: start: 20060919, end: 20060920

REACTIONS (13)
  - EMOTIONAL DISTRESS [None]
  - RENAL INJURY [None]
  - UNEVALUABLE EVENT [None]
  - ANHEDONIA [None]
  - INJURY [None]
  - DEATH [None]
  - PAIN [None]
  - MULTI-ORGAN FAILURE [None]
  - RENAL IMPAIRMENT [None]
  - STRESS [None]
  - ANXIETY [None]
  - FEAR [None]
  - RENAL FAILURE [None]
